FAERS Safety Report 8844270 (Version 1)
Quarter: 2012Q4

REPORT INFORMATION
  Report Type: 
  Country: US (occurrence: US)
  Receive Date: 20121017
  Receipt Date: 20121017
  Transmission Date: 20130627
  Serious: Yes (Other)
  Sender: FDA-Public Use
  Company Number: US-BAYER-2012-107925

PATIENT
  Age: 29 Year
  Sex: Female

DRUGS (2)
  1. YASMIN [Suspect]
     Dosage: UNK
     Dates: start: 2001, end: 2010
  2. OCELLA [Suspect]
     Dosage: UNK
     Dates: start: 2001, end: 2010

REACTIONS (1)
  - Gallbladder disorder [None]
